FAERS Safety Report 6666746-X (Version None)
Quarter: 2010Q2

REPORT INFORMATION
  Report Type: 
  Country: None (occurrence: None)
  Receive Date: 20100405
  Receipt Date: 20100322
  Transmission Date: 20101027
  Serious: Yes (Hospitalization)
  Sender: FDA-Public Use
  Company Number: US-RANBAXY-2010RR-32751

PATIENT
  Age: 19 Year
  Sex: Male

DRUGS (3)
  1. IBUPROFEN [Suspect]
     Route: 048
  2. ALPRAZOLAM [Concomitant]
     Route: 048
  3. COCAINE [Concomitant]
     Route: 048

REACTIONS (2)
  - METABOLIC ACIDOSIS [None]
  - OVERDOSE [None]
